FAERS Safety Report 6454627-6 (Version None)
Quarter: 2009Q4

REPORT INFORMATION
  Report Type: 
  Country: None (occurrence: None)
  Receive Date: 20091118
  Receipt Date: 20091107
  Transmission Date: 20100525
  Serious: Yes (Hospitalization, Other)
  Sender: FDA-Public Use
  Company Number: 2009AP004505

PATIENT
  Age: 31 Year
  Sex: Female

DRUGS (3)
  1. HYDROCHLOROTHIAZIDE [Suspect]
     Dosage: 12.5 MG;QD
  2. METOPROLOL [Concomitant]
  3. LORATADINE [Concomitant]

REACTIONS (3)
  - AESTHESIONEUROBLASTOMA [None]
  - INAPPROPRIATE ANTIDIURETIC HORMONE SECRETION [None]
  - RHINORRHOEA [None]
